FAERS Safety Report 11232057 (Version 1)
Quarter: 2015Q3

REPORT INFORMATION
  Report Type: Spontaneous
  Country: US (occurrence: US)
  Receive Date: 20150701
  Receipt Date: 20150701
  Transmission Date: 20151125
  Serious: Yes (Other)
  Sender: FDA-Public Use
  Company Number: US-PROCTER_AND_GAMBLE-CIO15039277

PATIENT
  Sex: Male

DRUGS (1)
  1. CREST PRO-HEALTH ANTICAVITY FLUORIDE RINSE [Suspect]
     Active Substance: SODIUM FLUORIDE
     Dosage: 1 APPLIC, UNKNOWN FREQUENCY
     Route: 002

REACTIONS (5)
  - Throat irritation [Recovered/Resolved]
  - Throat tightness [Recovered/Resolved]
  - Cough [Recovered/Resolved]
  - Hypersensitivity [Recovered/Resolved]
  - Choking [Recovered/Resolved]
